FAERS Safety Report 14996882 (Version 3)
Quarter: 2019Q2

REPORT INFORMATION
  Report Type: Spontaneous
  Country: US (occurrence: US)
  Receive Date: 20180611
  Receipt Date: 20190514
  Transmission Date: 20190711
  Serious: No
  Sender: FDA-Public Use
  Company Number: US-PFIZER INC-2018235296

PATIENT
  Age: 61 Year
  Sex: Female
  Weight: 104.31 kg

DRUGS (3)
  1. SERTRALINE HCL [Suspect]
     Active Substance: SERTRALINE HYDROCHLORIDE
     Indication: CEREBROVASCULAR ACCIDENT
     Dosage: 25 MG, 1X/DAY IN THE MORNING
  2. SERTRALINE HCL [Suspect]
     Active Substance: SERTRALINE HYDROCHLORIDE
     Indication: CEREBROVASCULAR ACCIDENT
     Dosage: 25 MG, 1X/DAY IN THE MORNING
  3. SERTRALINE HCL [Suspect]
     Active Substance: SERTRALINE HYDROCHLORIDE
     Indication: CEREBROVASCULAR ACCIDENT
     Dosage: 25 MG, 1X/DAY IN THE MORNING

REACTIONS (4)
  - Dyskinesia [Unknown]
  - Gait inability [Unknown]
  - Incontinence [Unknown]
  - Drug ineffective for unapproved indication [Unknown]
